FAERS Safety Report 6258191-6 (Version None)
Quarter: 2009Q3

REPORT INFORMATION
  Report Type: 
  Country: None (occurrence: None)
  Receive Date: 20090707
  Receipt Date: 20090701
  Transmission Date: 20100115
  Serious: No
  Sender: FDA-Public Use
  Company Number: US-JNJFOC-20090603431

PATIENT
  Sex: Female
  Weight: 71.22 kg

DRUGS (5)
  1. DURAGESIC-100 [Suspect]
     Indication: PAIN
     Route: 062
  2. LEXAPRO [Concomitant]
     Indication: DEPRESSION
     Route: 048
  3. XANAX [Concomitant]
     Indication: MUSCLE RELAXANT THERAPY
     Dosage: 0.5 MG
     Route: 048
  4. CATAPRES [Concomitant]
     Indication: BLOOD PRESSURE
     Dosage: 0.8 MG
     Route: 048
  5. CATAPRES [Concomitant]
     Route: 062

REACTIONS (6)
  - APPLICATION SITE VESICLES [None]
  - DEVICE ADHESION ISSUE [None]
  - DRUG DISPENSING ERROR [None]
  - EXPIRED DRUG ADMINISTERED [None]
  - PRODUCT QUALITY ISSUE [None]
  - WRONG TECHNIQUE IN DRUG USAGE PROCESS [None]
